FAERS Safety Report 10350390 (Version 1)
Quarter: 2014Q3

REPORT INFORMATION
  Report Type: Spontaneous
  Country: US (occurrence: US)
  Receive Date: 20140730
  Receipt Date: 20140730
  Transmission Date: 20150326
  Serious: No
  Sender: FDA-Public Use
  Company Number: US-ABBVIE-13P-163-1127963-00

PATIENT
  Sex: Female
  Weight: 86.26 kg

DRUGS (3)
  1. NIASPAN [Suspect]
     Active Substance: NIACIN
     Indication: BLOOD CHOLESTEROL INCREASED
     Dosage: 500 NOW
     Route: 048
     Dates: start: 201304, end: 201305
  2. NIASPAN [Suspect]
     Active Substance: NIACIN
     Route: 048
     Dates: start: 201305
  3. ASA [Concomitant]
     Active Substance: ASPIRIN
     Indication: PRODUCT USED FOR UNKNOWN INDICATION

REACTIONS (1)
  - Flushing [Unknown]
